FAERS Safety Report 8579106 (Version 2)
Quarter: 2013Q1

REPORT INFORMATION
  Report Type: Spontaneous
  Country: BR (occurrence: US)
  Receive Date: 20120524
  Receipt Date: 20130321
  Transmission Date: 20140127
  Serious: Yes (Hospitalization, Other)
  Sender: FDA-Public Use
  Company Number: BR-ROCHE-1071464

PATIENT
  Age: 24 Year
  Sex: Male

DRUGS (1)
  1. ROACUTAN [Suspect]
     Indication: PRODUCT USED FOR UNKNOWN INDICATION
     Route: 048

REACTIONS (3)
  - Immunodeficiency [Not Recovered/Not Resolved]
  - Lung infection [Recovered/Resolved]
  - Depression [Unknown]
